FAERS Safety Report 6656430-0 (Version None)
Quarter: 2010Q1

REPORT INFORMATION
  Report Type: 
  Country: None (occurrence: None)
  Receive Date: 20100329
  Receipt Date: 20100319
  Transmission Date: 20100710
  Serious: Yes (Other)
  Sender: FDA-Public Use
  Company Number: JP-JNJFOC-20100305687

PATIENT
  Age: 41 Year
  Sex: Female

DRUGS (13)
  1. RISPERDAL CONSTA [Suspect]
     Indication: SCHIZOPHRENIA
     Route: 030
  2. RISPERDAL CONSTA [Suspect]
     Route: 030
  3. RISPERDAL CONSTA [Suspect]
     Route: 030
  4. RISPERIDONE [Suspect]
     Indication: SCHIZOPHRENIA
     Route: 048
  5. TRIAZOLAM [Concomitant]
     Route: 048
  6. NITRAZEPAM [Concomitant]
     Route: 048
  7. QUETIAPINE FUMARATE [Concomitant]
     Route: 048
  8. FERROUS CITRATE [Concomitant]
     Route: 048
  9. CHINESE HERBAL MEDICINE [Concomitant]
     Route: 048
  10. CHINESE HERBAL MEDICINE [Concomitant]
     Route: 065
  11. ESTAZOLAM [Concomitant]
     Route: 065
  12. HYDROXYZINE PAMOATE [Concomitant]
     Route: 065
  13. SENNA EXTRACT [Concomitant]
     Route: 065

REACTIONS (5)
  - BACK PAIN [None]
  - BLOOD CREATINE PHOSPHOKINASE INCREASED [None]
  - MUSCULOSKELETAL STIFFNESS [None]
  - OEDEMA [None]
  - PAIN IN EXTREMITY [None]
